FAERS Safety Report 8400685-9 (Version None)
Quarter: 2012Q2

REPORT INFORMATION
  Report Type: 
  Country: None (occurrence: None)
  Receive Date: 20120531
  Receipt Date: 20120525
  Transmission Date: 20120825
  Serious: Yes (Hospitalization, Other)
  Sender: FDA-Public Use
  Company Number: JP-TEVA-2011004046

PATIENT
  Age: 68 Year
  Sex: Female
  Weight: 44 kg

DRUGS (10)
  1. ACYCLOVIR [Concomitant]
     Dates: start: 20110131
  2. TREANDA [Suspect]
     Indication: B-CELL LYMPHOMA
     Route: 042
     Dates: start: 20110131, end: 20110201
  3. COTRIM [Concomitant]
     Dates: start: 20110131
  4. ENTECAVIR [Concomitant]
  5. PRAVASTATIN SODIUM [Concomitant]
  6. TREANDA [Suspect]
     Route: 042
     Dates: start: 20110628
  7. AMLODIPINE BESYLATE [Concomitant]
  8. ONDANSETRON [Concomitant]
     Dates: start: 20110202, end: 20110203
  9. TREANDA [Suspect]
     Route: 042
     Dates: start: 20110406, end: 20110407
  10. GRANISETRON HYDROCHLORIDE [Concomitant]
     Dates: start: 20110131, end: 20110625

REACTIONS (6)
  - HYPOGAMMAGLOBULINAEMIA [None]
  - NEUTROPHIL COUNT DECREASED [None]
  - PLATELET COUNT DECREASED [None]
  - ANAEMIA [None]
  - WHITE BLOOD CELL COUNT DECREASED [None]
  - LYMPHOCYTE COUNT DECREASED [None]
